FAERS Safety Report 20859477 (Version 2)
Quarter: 2022Q4

REPORT INFORMATION
  Report Type: Spontaneous
  Country: CH (occurrence: CH)
  Receive Date: 20220523
  Receipt Date: 20221019
  Transmission Date: 20230113
  Serious: Yes (Other)
  Sender: FDA-Public Use
  Company Number: None

PATIENT
  Age: 17 Year
  Sex: Female

DRUGS (12)
  1. INVANZ [Suspect]
     Active Substance: ERTAPENEM SODIUM
     Indication: Pyelonephritis
     Dosage: 1000 MILLIGRAM, QD
     Route: 041
     Dates: start: 20220309, end: 20220315
  2. CEFTRIAXONE [Concomitant]
     Active Substance: CEFTRIAXONE
     Dates: start: 20220308, end: 20220309
  3. MEROPENEM [Concomitant]
     Active Substance: MEROPENEM
     Dosage: UNK
     Dates: start: 20220316, end: 20220317
  4. MEROPENEM [Concomitant]
     Active Substance: MEROPENEM
     Dosage: UNK
     Dates: start: 20220316, end: 20220317
  5. CYCLOSPORINE [Concomitant]
     Active Substance: CYCLOSPORINE
  6. HYDROCORTISONE [Concomitant]
     Active Substance: HYDROCORTISONE
     Dates: start: 20220308
  7. LABETALOL [Concomitant]
     Active Substance: LABETALOL\LABETALOL HYDROCHLORIDE
     Dosage: UNK
     Dates: end: 20220307
  8. LABETALOL [Concomitant]
     Active Substance: LABETALOL\LABETALOL HYDROCHLORIDE
     Dosage: UNK
     Dates: start: 20220310
  9. PREDNISONE [Concomitant]
     Active Substance: PREDNISONE
     Dosage: UNK
     Dates: end: 20220307
  10. PREDNISONE [Concomitant]
     Active Substance: PREDNISONE
     Dosage: UNK
     Dates: start: 20220310
  11. PROPRANOLOL HYDROCHLORIDE [Concomitant]
     Active Substance: PROPRANOLOL HYDROCHLORIDE
     Dosage: UNK
     Dates: start: 20220309, end: 20220310
  12. SIROLIMUS [Concomitant]
     Active Substance: SIROLIMUS

REACTIONS (2)
  - Epilepsy [Recovered/Resolved]
  - Status epilepticus [Recovered/Resolved]

NARRATIVE: CASE EVENT DATE: 20220312
